FAERS Safety Report 7369829-4 (Version None)
Quarter: 2011Q1

REPORT INFORMATION
  Report Type: 
  Country: None (occurrence: None)
  Receive Date: 20110323
  Receipt Date: 20110321
  Transmission Date: 20110831
  Serious: Yes (Other)
  Sender: FDA-Public Use
  Company Number: CH-PFIZER INC-2011051606

PATIENT
  Age: 46 Year
  Sex: Male

DRUGS (4)
  1. TOVIAZ [Suspect]
     Dosage: 4 MG, 1X/DAY
     Route: 048
     Dates: start: 20110201, end: 20110101
  2. MARCOUMAR [Interacting]
     Dosage: UNK
     Route: 048
     Dates: start: 20070101
  3. IMUREK [Concomitant]
     Dosage: 50 MG, UNK
     Route: 048
  4. SIRDALUD [Concomitant]
     Dosage: 2 MG, UNK
     Route: 048

REACTIONS (2)
  - THROMBOSIS [None]
  - DRUG INTERACTION [None]
